FAERS Safety Report 9220303 (Version 1)
Quarter: 2013Q2

REPORT INFORMATION
  Report Type: Spontaneous
  Country: IN (occurrence: IN)
  Receive Date: 20130409
  Receipt Date: 20130409
  Transmission Date: 20140414
  Serious: Yes (Other)
  Sender: FDA-Public Use
  Company Number: IN-ROCHE-1207975

PATIENT
  Age: 50 Year
  Sex: Male

DRUGS (5)
  1. METALYSE [Suspect]
     Indication: MYOCARDIAL INFARCTION
     Route: 042
     Dates: start: 20110709, end: 20110709
  2. METALYSE [Suspect]
     Indication: MYOCARDIAL INFARCTION
  3. METALYSE [Suspect]
     Indication: ATRIOVENTRICULAR BLOCK COMPLETE
  4. ECOSPRIN [Concomitant]
  5. LOW MOLECULAR WEIGHT HEPARIN [Concomitant]

REACTIONS (2)
  - Drug ineffective [Unknown]
  - Hypotension [Unknown]
